FAERS Safety Report 21667422 (Version 1)
Quarter: 2022Q4

REPORT INFORMATION
  Report Type: Spontaneous
  Country: US (occurrence: US)
  Receive Date: 20221201
  Receipt Date: 20221201
  Transmission Date: 20230112
  Serious: Yes (Other)
  Sender: FDA-Public Use
  Company Number: US-MYLANLABS-2022M1134045

PATIENT
  Age: 54 Year
  Sex: Female

DRUGS (2)
  1. VORICONAZOLE [Suspect]
     Active Substance: VORICONAZOLE
     Indication: Keratitis fungal
     Dosage: UNK UNK, QH
     Route: 061
  2. NATAMYCIN [Suspect]
     Active Substance: NATAMYCIN
     Indication: Keratitis fungal
     Dosage: UNK UNK, QH
     Route: 061

REACTIONS (1)
  - Treatment failure [Unknown]
